FAERS Safety Report 25241429 (Version 1)
Quarter: 2025Q2

REPORT INFORMATION
  Report Type: Other
  Country: CN (occurrence: CN)
  Receive Date: 20250425
  Receipt Date: 20250425
  Transmission Date: 20250717
  Serious: Yes (Life-Threatening, Hospitalization, Other)
  Sender: LGM PHARMA SOLUTIONS, LLC
  Company Number: CN-LGM Pharma Solutions, LLC-2175609

PATIENT
  Age: 32 Year
  Sex: Female

DRUGS (1)
  1. ASPIRIN [Suspect]
     Active Substance: ASPIRIN
     Indication: Pre-eclampsia

REACTIONS (6)
  - Cerebral haemorrhage [Recovering/Resolving]
  - Cold sweat [Recovering/Resolving]
  - Loss of consciousness [Unknown]
  - Vomiting projectile [Recovering/Resolving]
  - Headache [Recovering/Resolving]
  - Intraventricular haemorrhage [Recovering/Resolving]
